FAERS Safety Report 23314050 (Version 1)
Quarter: 2023Q4

REPORT INFORMATION
  Report Type: Spontaneous
  Country: JP (occurrence: JP)
  Receive Date: 20231219
  Receipt Date: 20231219
  Transmission Date: 20240110
  Serious: Yes (Hospitalization)
  Sender: FDA-Public Use
  Company Number: JP-DSJP-DSJ-2023-152019

PATIENT
  Age: 88 Year

DRUGS (1)
  1. EDOXABAN TOSYLATE [Suspect]
     Active Substance: EDOXABAN TOSYLATE
     Indication: Atrial fibrillation
     Dosage: 15 MG, QD
     Route: 048
     Dates: start: 20231213, end: 20231213

REACTIONS (1)
  - Ischaemic cerebral infarction [Unknown]

NARRATIVE: CASE EVENT DATE: 20231214
